FAERS Safety Report 7703729-2 (Version None)
Quarter: 2011Q3

REPORT INFORMATION
  Report Type: 
  Country: None (occurrence: None)
  Receive Date: 20110823
  Receipt Date: 20110809
  Transmission Date: 20111222
  Serious: Yes (Other)
  Sender: FDA-Public Use
  Company Number: GB-SANOFI-AVENTIS-2011SA051077

PATIENT

DRUGS (5)
  1. OXALIPLATIN [Suspect]
     Route: 065
  2. FLUOROURACIL [Suspect]
     Route: 065
  3. CETUXIMAB [Suspect]
     Route: 065
  4. CAPECITABINE [Suspect]
     Route: 065
  5. LEUCOVORIN CALCIUM [Suspect]
     Route: 065

REACTIONS (11)
  - PALMAR-PLANTAR ERYTHRODYSAESTHESIA SYNDROME [None]
  - HYPOMAGNESAEMIA [None]
  - VOMITING [None]
  - NEUROPATHY PERIPHERAL [None]
  - LETHARGY [None]
  - DIARRHOEA [None]
  - RASH [None]
  - HYPERSENSITIVITY [None]
  - NEUTROPENIC SEPSIS [None]
  - NEUTROPENIA [None]
  - NAUSEA [None]
